FAERS Safety Report 6195972-1 (Version None)
Quarter: 2009Q2

REPORT INFORMATION
  Report Type: 
  Country: None (occurrence: None)
  Receive Date: 20090520
  Receipt Date: 20090512
  Transmission Date: 20091009
  Serious: Yes (Other)
  Sender: FDA-Public Use
  Company Number: PHHY2009CA17408

PATIENT
  Sex: Male
  Weight: 75 kg

DRUGS (9)
  1. EXJADE [Suspect]
     Indication: IRON OVERLOAD
     Dosage: 2 G/DAY
     Route: 048
     Dates: start: 20081001, end: 20090310
  2. EXJADE [Suspect]
     Indication: THALASSAEMIA
  3. ACE INHIBITOR NOS [Concomitant]
  4. PENICILLIN [Concomitant]
     Dosage: 300 MG, BID
     Route: 048
  5. AMIODARONE [Concomitant]
     Route: 048
  6. VALSARTAN [Concomitant]
  7. ALENDRONATE SODIUM [Concomitant]
  8. VITAMIN D3 [Concomitant]
  9. ANPHSEL [Concomitant]
     Route: 048

REACTIONS (5)
  - BIOPSY KIDNEY [None]
  - BLOOD CREATININE INCREASED [None]
  - GLOMERULAR FILTRATION RATE DECREASED [None]
  - RENAL CANCER [None]
  - RENAL DISORDER [None]
